FAERS Safety Report 6942819-9 (Version None)
Quarter: 2010Q3

REPORT INFORMATION
  Report Type: 
  Country: None (occurrence: None)
  Receive Date: 20100826
  Receipt Date: 20100818
  Transmission Date: 20110219
  Serious: Yes (Other)
  Sender: FDA-Public Use
  Company Number: CO-ROCHE-721724

PATIENT
  Sex: Female

DRUGS (4)
  1. CELLCEPT [Suspect]
     Dosage: FREQUENCY: EVERY DAY
     Route: 048
     Dates: start: 20061219, end: 20100501
  2. TACROLIMUS [Concomitant]
     Dosage: FREQUENCY:EVERY DAY
     Route: 048
  3. PREDNISOLONE [Concomitant]
     Dosage: FREQUENCY: EVENRY DAY
     Route: 048
  4. FOLIC ACID [Concomitant]
     Dosage: FREQUENCY : EVERY DAYY
     Route: 048

REACTIONS (1)
  - TRANSPLANT REJECTION [None]
